FAERS Safety Report 11072838 (Version 1)
Quarter: 2015Q2

REPORT INFORMATION
  Report Type: Spontaneous
  Country: CN (occurrence: CN)
  Receive Date: 20150428
  Receipt Date: 20150428
  Transmission Date: 20150821
  Serious: Yes (Hospitalization)
  Sender: FDA-Public Use
  Company Number: CN-BAYER-2015-140873

PATIENT
  Sex: Male
  Weight: 2 kg

DRUGS (1)
  1. CANESTEN (KAINITING) [Suspect]
     Active Substance: CLOTRIMAZOLE
     Dosage: UNK
     Route: 064

REACTIONS (3)
  - Foetal exposure timing unspecified [None]
  - Low birth weight baby [Recovered/Resolved]
  - Premature baby [Recovered/Resolved]
